FAERS Safety Report 15606532 (Version 1)
Quarter: 2018Q4

REPORT INFORMATION
  Report Type: Spontaneous
  Country: US (occurrence: US)
  Receive Date: 20181112
  Receipt Date: 20181112
  Transmission Date: 20190205
  Serious: Yes (Hospitalization)
  Sender: FDA-Public Use
  Company Number: US-TEVA-2018-US-975430

PATIENT
  Sex: Female

DRUGS (1)
  1. CLONAZEPAM. [Suspect]
     Active Substance: CLONAZEPAM
     Indication: PANIC DISORDER
     Route: 065

REACTIONS (16)
  - Fear [Unknown]
  - Sleep disorder [Unknown]
  - Nausea [Unknown]
  - Anxiety [Unknown]
  - Cardiac disorder [Unknown]
  - Agitation [Unknown]
  - Product substitution issue [Unknown]
  - Nightmare [Unknown]
  - Insomnia [Unknown]
  - Malaise [Unknown]
  - Anger [Unknown]
  - Feeling abnormal [Unknown]
  - Gastric disorder [Unknown]
  - Palpitations [Unknown]
  - Pancreatic disorder [Unknown]
  - Blood pressure increased [Recovered/Resolved]
